FAERS Safety Report 7231750-X (Version None)
Quarter: 2011Q1

REPORT INFORMATION
  Report Type: 
  Country: None (occurrence: None)
  Receive Date: 20110118
  Receipt Date: 20101220
  Transmission Date: 20110831
  Serious: No
  Sender: FDA-Public Use
  Company Number: US-BAYER-2010-005494

PATIENT
  Sex: Female
  Weight: 91 kg

DRUGS (4)
  1. ALEVE (CAPLET) [Suspect]
     Indication: POSTOPERATIVE ANALGESIA
     Dosage: 440 MG, BID
     Route: 048
  2. TYLENOL COLD [PARACETAMOL] [Concomitant]
     Indication: POSTOPERATIVE ANALGESIA
  3. FLUOXETINE [Concomitant]
  4. LIPITOR [Concomitant]

REACTIONS (4)
  - JOINT SWELLING [None]
  - ECCHYMOSIS [None]
  - ERYTHEMA [None]
  - OEDEMA PERIPHERAL [None]
